FAERS Safety Report 9603184 (Version 2)
Quarter: 2013Q4

REPORT INFORMATION
  Report Type: Spontaneous
  Country: US (occurrence: US)
  Receive Date: 20131007
  Receipt Date: 20131021
  Transmission Date: 20140711
  Serious: Yes (Hospitalization)
  Sender: FDA-Public Use
  Company Number: US-009507513-1310USA001792

PATIENT
  Sex: Female

DRUGS (1)
  1. ISENTRESS [Suspect]
     Dosage: 400 MG, TWICE A DAY
     Route: 048

REACTIONS (1)
  - Adverse event [Unknown]
